FAERS Safety Report 5819405-7 (Version None)
Quarter: 2008Q3

REPORT INFORMATION
  Report Type: 
  Country: None (occurrence: None)
  Receive Date: 20080717
  Receipt Date: 20080709
  Transmission Date: 20090109
  Serious: Yes (Other)
  Sender: FDA-Public Use
  Company Number: 2008SP013936

PATIENT
  Age: 14 Year
  Sex: Male
  Weight: 51 kg

DRUGS (3)
  1. LORATADINE [Suspect]
     Indication: SEASONAL ALLERGY
     Dosage: 10 MG;
  2. LANTUS (CON.) [Concomitant]
  3. NOVORAPID (CON.) [Concomitant]

REACTIONS (8)
  - AGGRESSION [None]
  - BACTERIAL INFECTION [None]
  - BLOOD GLUCOSE ABNORMAL [None]
  - CONVULSION [None]
  - FALL [None]
  - HYPOGLYCAEMIA [None]
  - TREMOR [None]
  - VIRAL INFECTION [None]
